FAERS Safety Report 7233396-6 (Version None)
Quarter: 2011Q1

REPORT INFORMATION
  Report Type: 
  Country: None (occurrence: None)
  Receive Date: 20110119
  Receipt Date: 20110114
  Transmission Date: 20110831
  Serious: Yes (Hospitalization)
  Sender: FDA-Public Use
  Company Number: FR-ROCHE-753615

PATIENT
  Sex: Female

DRUGS (2)
  1. RIVOTRIL [Suspect]
     Route: 048
     Dates: end: 20101206
  2. ZOPICLONE [Suspect]
     Route: 048
     Dates: start: 20101206, end: 20101206

REACTIONS (1)
  - TOXICITY TO VARIOUS AGENTS [None]
